FAERS Safety Report 7581133-8 (Version None)
Quarter: 2011Q2

REPORT INFORMATION
  Report Type: 
  Country: None (occurrence: None)
  Receive Date: 20110629
  Receipt Date: 20110623
  Transmission Date: 20111010
  Serious: Yes (Death, Hospitalization)
  Sender: FDA-Public Use
  Company Number: US-CELGENEUS-163-21880-11063096

PATIENT
  Age: 53 Year
  Sex: Male
  Weight: 80 kg

DRUGS (5)
  1. BORTEZOMIB [Suspect]
     Dosage: 2.6 MILLIGRAM/SQ. METER
     Dates: start: 20110613, end: 20110616
  2. ASPIRIN [Concomitant]
     Dosage: 325 MILLIGRAM
     Dates: start: 20110609
  3. REVLIMID [Suspect]
     Indication: MULTIPLE MYELOMA
     Dosage: 25 MILLIGRAM
     Route: 048
     Dates: start: 20110609, end: 20110618
  4. DEXAMETHASONE [Suspect]
     Indication: MULTIPLE MYELOMA
     Dosage: 20 MILLIGRAM
     Route: 048
     Dates: start: 20110609, end: 20110617
  5. BORTEZOMIB [Suspect]
     Indication: MULTIPLE MYELOMA
     Dosage: 2.6 MILLIGRAM/SQ. METER
     Dates: start: 20110609

REACTIONS (4)
  - SEPSIS [None]
  - HEPATIC FAILURE [None]
  - RENAL FAILURE ACUTE [None]
  - ACUTE RESPIRATORY DISTRESS SYNDROME [None]
